FAERS Safety Report 26130000 (Version 1)
Quarter: 2025Q4

REPORT INFORMATION
  Report Type: Spontaneous
  Country: AR (occurrence: AR)
  Receive Date: 20251208
  Receipt Date: 20251208
  Transmission Date: 20260118
  Serious: Yes (Other)
  Sender: GENMAB
  Company Number: AR-ABBVIE-6573771

PATIENT
  Age: 45 Year
  Sex: Male

DRUGS (1)
  1. EPCORITAMAB [Suspect]
     Active Substance: EPCORITAMAB
     Indication: Product used for unknown indication
     Dosage: UNK
     Route: 058

REACTIONS (2)
  - Diffuse large B-cell lymphoma [Recovering/Resolving]
  - Cytokine release syndrome [Recovering/Resolving]
